FAERS Safety Report 8787684 (Version 1)
Quarter: 2012Q4

REPORT INFORMATION
  Report Type: 
  Country: US (occurrence: US)
  Receive Date: 20120914
  Receipt Date: 20120914
  Transmission Date: 20130627
  Serious: Yes (Other)
  Sender: FDA-Public Use
  Company Number: US-AMGEN-USASP2012057526

PATIENT
  Age: 59 Year
  Sex: Female
  Weight: 62.4 kg

DRUGS (2)
  1. NPLATE [Suspect]
     Indication: IDIOPATHIC THROMBOCYTOPENIC PURPURA
     Dosage: 420 mug, qwk
     Dates: start: 20120315
  2. PREDNISONE [Concomitant]
     Dosage: 20 mg, qd

REACTIONS (1)
  - Therapeutic response decreased [Unknown]
